FAERS Safety Report 8958602 (Version 1)
Quarter: 2012Q4

REPORT INFORMATION
  Report Type: Spontaneous
  Country: US (occurrence: None)
  Receive Date: 20121205
  Receipt Date: 20121205
  Transmission Date: 20130627
  Serious: Yes (Life-Threatening)
  Sender: FDA-Public Use
  Company Number: None

PATIENT
  Weight: 76.2 kg

DRUGS (1)
  1. METHADONE 10 MG [Suspect]
     Indication: PAIN MANAGEMENT
     Dosage: (ASC - 116) - on pill (description)
(54142)  Both Round
(M-57-71)  Retangular
     Route: 048

REACTIONS (11)
  - Product substitution issue [None]
  - Withdrawal syndrome [None]
  - Drug dependence [None]
  - Hyperhidrosis [None]
  - Confusional state [None]
  - Malaise [None]
  - Feeling abnormal [None]
  - Product counterfeit [None]
  - Product quality issue [None]
  - Pain [None]
  - Road traffic accident [None]
